FAERS Safety Report 22003023 (Version 1)
Quarter: 2023Q1

REPORT INFORMATION
  Report Type: Spontaneous
  Country: DE (occurrence: DE)
  Receive Date: 20230217
  Receipt Date: 20230217
  Transmission Date: 20230417
  Serious: Yes (Other)
  Sender: FDA-Public Use
  Company Number: DE-BRISTOL-MYERS SQUIBB COMPANY-2023-019449

PATIENT
  Age: 61 Year
  Sex: Male

DRUGS (2)
  1. IDECABTAGENE VICLEUCEL [Suspect]
     Active Substance: IDECABTAGENE VICLEUCEL
     Indication: Plasma cell myeloma
     Dosage: DOSE: 450X 10^6 CAR T CELLS
  2. CARFILZOMIB [Concomitant]
     Active Substance: CARFILZOMIB

REACTIONS (2)
  - Cytokine release syndrome [Recovering/Resolving]
  - Pulmonary sarcoidosis [Unknown]
